FAERS Safety Report 9067195 (Version 1)
Quarter: 2013Q1

REPORT INFORMATION
  Report Type: Spontaneous
  Country: US (occurrence: US)
  Receive Date: 20130214
  Receipt Date: 20130214
  Transmission Date: 20140127
  Serious: No
  Sender: FDA-Public Use
  Company Number: US-PFIZER INC-2013059525

PATIENT
  Sex: Male

DRUGS (2)
  1. CHANTIX [Suspect]
     Indication: SMOKING CESSATION THERAPY
     Dosage: 1 MG, 1X/DAY
     Route: 048
     Dates: start: 201301
  2. CHANTIX [Suspect]
     Dosage: 1 MG, UNK
     Route: 048

REACTIONS (3)
  - Mood altered [Unknown]
  - Feeling abnormal [Unknown]
  - Abnormal dreams [Unknown]
